FAERS Safety Report 5581489-1 (Version None)
Quarter: 2007Q4

REPORT INFORMATION
  Report Type: 
  Country: None (occurrence: None)
  Receive Date: 20071231
  Receipt Date: 20071219
  Transmission Date: 20080405
  Serious: Yes (Other)
  Sender: FDA-Public Use
  Company Number: OSCN-PR-0712L-0512

PATIENT
  Age: 64 Year
  Sex: Male
  Weight: 70 kg

DRUGS (5)
  1. OMNISCAN [Suspect]
     Indication: CEREBROVASCULAR ACCIDENT
     Dosage: 35 ML, I.V.
     Route: 042
     Dates: start: 20051009, end: 20051009
  2. ASPIRIN [Concomitant]
  3. PROPANTHELINE [Concomitant]
  4. MULTI-VITAMIN [Concomitant]
  5. FISH OIL SUPPLEMENT [Concomitant]

REACTIONS (5)
  - NEPHROGENIC SYSTEMIC FIBROSIS [None]
  - RASH [None]
  - RENAL FAILURE ACUTE [None]
  - RHABDOMYOLYSIS [None]
  - SKIN LESION [None]
